FAERS Safety Report 5521410-5 (Version None)
Quarter: 2007Q4

REPORT INFORMATION
  Report Type: 
  Country: None (occurrence: None)
  Receive Date: 20071119
  Receipt Date: 20071107
  Transmission Date: 20080405
  Serious: Yes (Other)
  Sender: FDA-Public Use
  Company Number: US-PFIZER INC-2007077785

PATIENT
  Sex: Male
  Weight: 77.272 kg

DRUGS (3)
  1. CHANTIX [Suspect]
     Indication: SMOKING CESSATION THERAPY
     Route: 048
  2. GLIMEPIRIDE [Concomitant]
     Indication: DIABETES MELLITUS
  3. OXYCONTIN [Concomitant]
     Indication: PAIN

REACTIONS (12)
  - BLISTER [None]
  - DIZZINESS [None]
  - DYSPHAGIA [None]
  - DYSPHONIA [None]
  - DYSPNOEA [None]
  - HYPERSENSITIVITY [None]
  - MALAISE [None]
  - MUSCULOSKELETAL STIFFNESS [None]
  - PAIN [None]
  - RASH ERYTHEMATOUS [None]
  - SCAR [None]
  - SWELLING [None]
